FAERS Safety Report 20800967 (Version 1)
Quarter: 2022Q2

REPORT INFORMATION
  Report Type: Report from Study
  Country: CA (occurrence: CA)
  Receive Date: 20220509
  Receipt Date: 20220509
  Transmission Date: 20220720
  Serious: Yes (Hospitalization, Other)
  Sender: FDA-Public Use
  Company Number: CA-ABBVIE-22K-028-4379972-00

PATIENT
  Age: 38 Year
  Sex: Female

DRUGS (2)
  1. HUMIRA [Suspect]
     Active Substance: ADALIMUMAB
     Indication: Crohn^s disease
     Route: 058
     Dates: start: 20170920, end: 2022
  2. HUMIRA [Suspect]
     Active Substance: ADALIMUMAB
     Route: 058
     Dates: start: 202203

REACTIONS (15)
  - Placenta praevia [Unknown]
  - Anal fistula [Unknown]
  - Maternal exposure during pregnancy [Unknown]
  - Anorectal discomfort [Unknown]
  - Vulval cellulitis [Recovered/Resolved]
  - Vulval abscess [Recovered/Resolved]
  - Incision site discharge [Unknown]
  - Incision site complication [Unknown]
  - Female genital tract fistula [Unknown]
  - Immunosuppression [Unknown]
  - Anorectal disorder [Not Recovered/Not Resolved]
  - Rectal discharge [Not Recovered/Not Resolved]
  - Vulvovaginitis [Unknown]
  - Swelling [Not Recovered/Not Resolved]
  - Purulent discharge [Not Recovered/Not Resolved]

NARRATIVE: CASE EVENT DATE: 20211001
